FAERS Safety Report 15357840 (Version 1)
Quarter: 2020Q3

REPORT INFORMATION
  Report Type: Spontaneous
  Country: CH (occurrence: CH)
  Receive Date: 20180906
  Receipt Date: 20180906
  Transmission Date: 20201105
  Serious: Yes (Hospitalization, Other)
  Sender: FDA-Public Use
  Company Number: IND-CH-009507513-1709CHE005699

PATIENT
  Sex: Female

DRUGS (8)
  1. COMILORID [Interacting]
     Active Substance: HYDROCHLOROTHIAZIDE
     Indication: OEDEMA PERIPHERAL
     Dosage: 1 DF, UNK
     Route: 048
     Dates: start: 2017, end: 20170830
  2. INDERAL LA [Concomitant]
     Active Substance: PROPRANOLOL HYDROCHLORIDE
     Indication: TREMOR
     Dosage: 40 MG, QD
     Route: 048
     Dates: end: 20170904
  3. ARCOXIA [Suspect]
     Active Substance: ETORICOXIB
     Indication: ARTHRITIS
     Dosage: 1 DF, UNK
     Route: 048
     Dates: start: 201708, end: 201708
  4. LITHIOFOR [Interacting]
     Active Substance: LITHIUM SULFATE
     Indication: DEPRESSION
     Dosage: 660 MG, QD
     Route: 048
     Dates: start: 2007, end: 20170830
  5. APROVEL [Concomitant]
     Active Substance: IRBESARTAN
     Indication: HYPERTENSION
     Dosage: 300 MG, QD
     Route: 048
  6. PRAVASTATIN. [Concomitant]
     Active Substance: PRAVASTATIN
     Dosage: 20 MG, QD
     Route: 048
  7. ISOKET RETARD [Concomitant]
     Dosage: 20 MG, QD
     Route: 048
  8. MARCOUMAR [Concomitant]
     Active Substance: PHENPROCOUMON
     Dosage: 1 DF, UNK
     Route: 048

REACTIONS (7)
  - Toxicity to various agents [Recovered/Resolved]
  - Speech disorder [Recovered/Resolved]
  - Drug interaction [Recovered/Resolved]
  - Acute kidney injury [Recovered/Resolved]
  - Tremor [Recovered/Resolved]
  - Diarrhoea [Recovered/Resolved]
  - Syncope [Recovered/Resolved]

NARRATIVE: CASE EVENT DATE: 201708
